FAERS Safety Report 24437359 (Version 2)
Quarter: 2025Q2

REPORT INFORMATION
  Report Type: Spontaneous
  Country: JP (occurrence: JP)
  Receive Date: 20241015
  Receipt Date: 20250617
  Transmission Date: 20250717
  Serious: Yes (Hospitalization)
  Sender: ROCHE
  Company Number: JP-ROCHE-10000049488

PATIENT
  Age: 66 Year
  Sex: Male
  Weight: 85 kg

DRUGS (13)
  1. ATEZOLIZUMAB [Suspect]
     Active Substance: ATEZOLIZUMAB
     Indication: Hepatocellular carcinoma
     Route: 065
  2. BEVACIZUMAB [Suspect]
     Active Substance: BEVACIZUMAB
     Indication: Hepatocellular carcinoma
     Route: 065
  3. LENVATINIB [Suspect]
     Active Substance: LENVATINIB
     Indication: Hepatocellular carcinoma
     Route: 065
  4. OXYCODONE HYDROCHLORIDE [Concomitant]
     Active Substance: OXYCODONE HYDROCHLORIDE
     Route: 065
  5. VONOPRAZAN FUMARATE [Concomitant]
     Active Substance: VONOPRAZAN FUMARATE
     Route: 065
  6. OXYCODONE [Concomitant]
     Active Substance: OXYCODONE
  7. PIOGLITAZONE HYDROCHLORIDE [Concomitant]
     Active Substance: PIOGLITAZONE HYDROCHLORIDE
     Route: 065
  8. VONOPRAZAN [Concomitant]
     Active Substance: VONOPRAZAN
  9. MIROGABALIN BESYLATE [Concomitant]
     Active Substance: MIROGABALIN BESYLATE
     Route: 065
  10. POLAPREZINC [Concomitant]
     Active Substance: POLAPREZINC
     Route: 065
  11. AMINO ACIDS, SOURCE UNSPECIFIED [Concomitant]
     Active Substance: AMINO ACIDS, SOURCE UNSPECIFIED
     Route: 065
  12. PIOGLITAZONE [Concomitant]
     Active Substance: PIOGLITAZONE
  13. MIROGABALIN [Concomitant]
     Active Substance: MIROGABALIN

REACTIONS (2)
  - Drug ineffective [Unknown]
  - Fournier^s gangrene [Recovering/Resolving]
